FAERS Safety Report 19242307 (Version 1)
Quarter: 2021Q2

REPORT INFORMATION
  Report Type: Report from Study
  Country: US (occurrence: US)
  Receive Date: 20210510
  Receipt Date: 20210510
  Transmission Date: 20210717
  Serious: Yes (Hospitalization)
  Sender: FDA-Public Use
  Company Number: US-ASTELLAS-2021US016687

PATIENT
  Age: 53 Year
  Sex: Female

DRUGS (9)
  1. INCB039110 [Suspect]
     Active Substance: ITACITINIB
     Indication: BRONCHIOLITIS OBLITERANS SYNDROME
     Route: 048
     Dates: start: 20210217, end: 20210329
  2. PREDNISONE. [Suspect]
     Active Substance: PREDNISONE
     Indication: PRODUCT USED FOR UNKNOWN INDICATION
     Dosage: UNK UNK, UNKNOWN FREQ.
     Route: 065
  3. OMEPRAZOLE. [Concomitant]
     Active Substance: OMEPRAZOLE
     Indication: PRODUCT USED FOR UNKNOWN INDICATION
     Dosage: UNK UNK, UNKNOWN FREQ.
     Route: 065
     Dates: start: 201611
  4. INCB039110 [Suspect]
     Active Substance: ITACITINIB
     Dosage: UNK UNK, UNKNOWN FREQ. (TOOK A DOSE IN THE EVENING)
     Route: 048
     Dates: start: 20210331, end: 20210409
  5. TACROLIMUS. [Suspect]
     Active Substance: TACROLIMUS
     Indication: PRODUCT USED FOR UNKNOWN INDICATION
     Dosage: UNK UNK, UNKNOWN FREQ.
     Route: 065
  6. SULFAMETHOXAZOLE;TRIMETHOPRIM [Concomitant]
     Active Substance: SULFAMETHOXAZOLE\TRIMETHOPRIM
     Indication: PRODUCT USED FOR UNKNOWN INDICATION
     Dosage: UNK UNK, UNKNOWN FREQ.
     Route: 065
     Dates: start: 20170914
  7. VALGANCICLOVIR. [Suspect]
     Active Substance: VALGANCICLOVIR
     Indication: PRODUCT USED FOR UNKNOWN INDICATION
     Dosage: UNK UNK, UNKNOWN FREQ.
     Route: 065
     Dates: start: 20210217, end: 20210318
  8. MYFORTIC [Suspect]
     Active Substance: MYCOPHENOLATE SODIUM
     Indication: PRODUCT USED FOR UNKNOWN INDICATION
     Dosage: UNK UNK, UNKNOWN FREQ.
     Route: 065
     Dates: start: 20170914
  9. INCB039110 [Suspect]
     Active Substance: ITACITINIB
     Dosage: 300 MG, ONCE DAILY (IN THE MORNING)
     Route: 048
     Dates: start: 20210330, end: 20210330

REACTIONS (6)
  - Hypercapnia [Not Recovered/Not Resolved]
  - Febrile neutropenia [Recovered/Resolved]
  - Pneumonia fungal [Recovering/Resolving]
  - Dysuria [Recovered/Resolved]
  - Large intestine infection [Recovered/Resolved]
  - Hypotension [Recovered/Resolved]

NARRATIVE: CASE EVENT DATE: 20210330
